FAERS Safety Report 9867171 (Version 1)
Quarter: 2014Q1

REPORT INFORMATION
  Report Type: Spontaneous
  Country: FR (occurrence: FR)
  Receive Date: 20140204
  Receipt Date: 20140204
  Transmission Date: 20141002
  Serious: Yes (Hospitalization, Other)
  Sender: FDA-Public Use
  Company Number: FR-ELI_LILLY_AND_COMPANY-FR201401008930

PATIENT
  Age: 57 Year
  Sex: Male

DRUGS (8)
  1. CYMBALTA [Suspect]
     Indication: DEPRESSION
     Dosage: 60 MG, QD
     Route: 048
  2. SERESTA [Concomitant]
     Dosage: 50 MG, QD
  3. RAMPRIL [Concomitant]
     Dosage: 10 MG, QD
  4. INDAPAMIDE [Concomitant]
     Dosage: 1.5 MG, QD
  5. DIFFU K [Concomitant]
     Dosage: UNK, QD
  6. SIMVASTATINE [Concomitant]
     Dosage: 20 MG, QD
  7. ALLOPURINOL [Concomitant]
     Dosage: 100 MG, QD
  8. INEXIUM                            /01479302/ [Concomitant]
     Dosage: 20 MG, QD

REACTIONS (9)
  - Grand mal convulsion [Recovered/Resolved]
  - Serotonin syndrome [Recovered/Resolved]
  - Nystagmus [Unknown]
  - Suicide attempt [Unknown]
  - Somnolence [Unknown]
  - Tremor [Unknown]
  - Mydriasis [Unknown]
  - White blood cell count increased [Unknown]
  - Intentional overdose [Unknown]
